FAERS Safety Report 7190652 (Version 4)
Quarter: 2013Q4

REPORT INFORMATION
  Report Type: Spontaneous
  Country: US (occurrence: US)
  Receive Date: 20091126
  Receipt Date: 20131206
  Transmission Date: 20140711
  Serious: Yes (Hospitalization, Other)
  Sender: FDA-Public Use
  Company Number: US-BIOGENIDEC-2008BI000218

PATIENT
  Age: 61 Year
  Sex: Female
  Weight: 56 kg

DRUGS (4)
  1. AVONEX [Suspect]
     Indication: MULTIPLE SCLEROSIS
     Route: 030
     Dates: start: 19970401, end: 2003
  2. AVONEX [Suspect]
     Indication: MULTIPLE SCLEROSIS
     Route: 030
     Dates: start: 2003, end: 20080118
  3. AVONEX [Suspect]
     Indication: MULTIPLE SCLEROSIS
     Route: 030
     Dates: start: 20080324, end: 201212
  4. ISOSORBIDE MONONITRATE [Concomitant]

REACTIONS (22)
  - Coccidioidomycosis [Not Recovered/Not Resolved]
  - Drug hypersensitivity [Recovered/Resolved]
  - Cardiac disorder [Recovered/Resolved]
  - Thrombosis in device [Unknown]
  - Hypotension [Not Recovered/Not Resolved]
  - Chest pain [Unknown]
  - Fall [Recovered/Resolved]
  - Concussion [Unknown]
  - Mental impairment [Unknown]
  - Multiple sclerosis [Unknown]
  - Temperature intolerance [Unknown]
  - Skin atrophy [Unknown]
  - Increased tendency to bruise [Unknown]
  - Urine odour abnormal [Unknown]
  - Chromaturia [Unknown]
  - Thyroid disorder [Unknown]
  - Feeling abnormal [Unknown]
  - Syncope [Unknown]
  - Decreased appetite [Unknown]
  - Depression [Unknown]
  - Influenza like illness [Unknown]
  - Red blood cell count decreased [Unknown]
